FAERS Safety Report 9350131 (Version 1)
Quarter: 2013Q2

REPORT INFORMATION
  Report Type: Spontaneous
  Country: KR (occurrence: KR)
  Receive Date: 20130616
  Receipt Date: 20130616
  Transmission Date: 20140414
  Serious: No
  Sender: FDA-Public Use
  Company Number: KR-MERCK-1306KOR006282

PATIENT
  Age: 63 Year
  Sex: Male

DRUGS (3)
  1. CASPOFUNGIN ACETATE [Suspect]
     Indication: PNEUMOCYSTIS JIROVECII PNEUMONIA
     Dosage: A SINGLE DOSE OF 70MG
  2. CASPOFUNGIN ACETATE [Suspect]
     Dosage: 50 MG, QD FOR 4 DAYS
  3. SULFAMETHOXAZOLE (+) TRIMETHOPRIM [Suspect]
     Indication: PNEUMOCYSTIS JIROVECII PNEUMONIA
     Dosage: 15 MG/KG A DAY

REACTIONS (1)
  - Drug ineffective [Unknown]
